FAERS Safety Report 5798677-1 (Version None)
Quarter: 2008Q3

REPORT INFORMATION
  Report Type: 
  Country: None (occurrence: None)
  Receive Date: 20080702
  Receipt Date: 20080623
  Transmission Date: 20090109
  Serious: Yes (Other)
  Sender: FDA-Public Use
  Company Number: US-ELI_LILLY_AND_COMPANY-US200806005095

PATIENT
  Sex: Female

DRUGS (4)
  1. FORTEO [Suspect]
     Indication: OSTEOPOROSIS
     Dosage: UNK, UNK
     Dates: start: 20071101, end: 20080101
  2. FORTEO [Suspect]
     Dates: start: 20080101
  3. METHOTREXATE [Concomitant]
     Indication: RHEUMATOID ARTHRITIS
  4. PREDNISONE 50MG TAB [Concomitant]
     Dosage: 10 MG, DAILY (1/D)

REACTIONS (2)
  - BONE DISORDER [None]
  - STRESS FRACTURE [None]
